FAERS Safety Report 12196321 (Version 1)
Quarter: 2016Q1

REPORT INFORMATION
  Report Type: Spontaneous
  Country: US (occurrence: US)
  Receive Date: 20160321
  Receipt Date: 20160321
  Transmission Date: 20160526
  Serious: No
  Sender: FDA-Public Use
  Company Number: US-TEVA-643740USA

PATIENT
  Sex: Female
  Weight: 108.41 kg

DRUGS (1)
  1. NUVIGIL [Suspect]
     Active Substance: ARMODAFINIL
     Indication: FATIGUE
     Dosage: 200 MILLIGRAM DAILY;
     Dates: start: 2006

REACTIONS (2)
  - Drug effect decreased [Unknown]
  - Off label use [Unknown]
